FAERS Safety Report 8421303-X (Version None)
Quarter: 2012Q2

REPORT INFORMATION
  Report Type: 
  Country: None (occurrence: None)
  Receive Date: 20120604
  Receipt Date: 20120604
  Transmission Date: 20120825
  Serious: Yes (Hospitalization)
  Sender: FDA-Public Use
  Company Number: None

PATIENT
  Age: 81 Year
  Sex: Male
  Weight: 101.7 kg

DRUGS (8)
  1. VANCOMYCIN [Suspect]
     Indication: VASCULAR OPERATION
     Dosage: 1000 MG EVERY DAY IV
     Route: 042
     Dates: start: 20111201, end: 20111210
  2. VANCOMYCIN [Suspect]
     Indication: LEUKOCYTOSIS
     Dosage: 1000 MG EVERY DAY IV
     Route: 042
     Dates: start: 20111201, end: 20111210
  3. VANCOMYCIN [Suspect]
     Indication: GANGRENE
     Dosage: 1000 MG EVERY DAY IV
     Route: 042
     Dates: start: 20111201, end: 20111210
  4. VANCOMYCIN [Suspect]
     Indication: SKIN ULCER
     Dosage: 1000 MG EVERY DAY IV
     Route: 042
     Dates: start: 20111201, end: 20111210
  5. PIPERACILLIN AND TAZOBACTAM [Suspect]
     Indication: VASCULAR OPERATION
     Dosage: 3.375 GM QID IV
     Route: 042
     Dates: start: 20111201, end: 20111208
  6. PIPERACILLIN AND TAZOBACTAM [Suspect]
     Indication: LEUKOCYTOSIS
     Dosage: 3.375 GM QID IV
     Route: 042
     Dates: start: 20111201, end: 20111208
  7. PIPERACILLIN AND TAZOBACTAM [Suspect]
     Indication: SKIN ULCER
     Dosage: 3.375 GM QID IV
     Route: 042
     Dates: start: 20111201, end: 20111208
  8. PIPERACILLIN AND TAZOBACTAM [Suspect]
     Indication: GANGRENE
     Dosage: 3.375 GM QID IV
     Route: 042
     Dates: start: 20111201, end: 20111208

REACTIONS (10)
  - PULMONARY OEDEMA [None]
  - PNEUMONIA STAPHYLOCOCCAL [None]
  - RENAL FAILURE ACUTE [None]
  - STAPHYLOCOCCAL BACTERAEMIA [None]
  - PNEUMONIA [None]
  - DRUG LEVEL INCREASED [None]
  - TUBULOINTERSTITIAL NEPHRITIS [None]
  - NO THERAPEUTIC RESPONSE [None]
  - HAEMODIALYSIS [None]
  - CELLULITIS [None]
